FAERS Safety Report 5121683-7 (Version None)
Quarter: 2006Q4

REPORT INFORMATION
  Report Type: 
  Country: None (occurrence: None)
  Receive Date: 20061006
  Receipt Date: 20061002
  Transmission Date: 20070319
  Serious: Yes (Other)
  Sender: FDA-Public Use
  Company Number: US-GLAXOSMITHKLINE-A0622140A

PATIENT
  Sex: Male

DRUGS (5)
  1. ADVAIR DISKUS 100/50 [Suspect]
     Dosage: 1PUFF TWICE PER DAY
     Route: 055
     Dates: start: 20060928, end: 20060929
  2. ROCEPHIN [Concomitant]
  3. DECADRON [Concomitant]
  4. BIAXIN [Concomitant]
  5. DIABETES MEDICATION [Concomitant]

REACTIONS (6)
  - ANXIETY [None]
  - BLOOD GLUCOSE INCREASED [None]
  - BLOOD PRESSURE INCREASED [None]
  - FLUSHING [None]
  - FORMICATION [None]
  - HALLUCINATION [None]
